FAERS Safety Report 4503585-X (Version None)
Quarter: 2004Q4

REPORT INFORMATION
  Report Type: 
  Country: None (occurrence: None)
  Receive Date: 20041112
  Receipt Date: 20041102
  Transmission Date: 20050328
  Serious: Yes (Hospitalization)
  Sender: FDA-Public Use
  Company Number: S04-FRA-07534-01

PATIENT
  Age: 57 Year
  Sex: Male

DRUGS (4)
  1. CITALOPRAM HYDROBROMIDE [Suspect]
     Dates: end: 20040101
  2. SOLIAN (AMISULPRIDE) [Concomitant]
  3. DEPAKOTE [Concomitant]
  4. LEPTICUR (TROPATEPINE HYDROCHLORIDE) [Concomitant]

REACTIONS (3)
  - GRAND MAL CONVULSION [None]
  - HYPONATRAEMIA [None]
  - MALAISE [None]
